FAERS Safety Report 7671903-X (Version None)
Quarter: 2011Q3

REPORT INFORMATION
  Report Type: 
  Country: None (occurrence: None)
  Receive Date: 20110809
  Receipt Date: 20110722
  Transmission Date: 20111222
  Serious: Yes (Hospitalization)
  Sender: FDA-Public Use
  Company Number: US-GLAXOSMITHKLINE-A0873852A

PATIENT
  Age: 61 Year
  Sex: Female
  Weight: 79.5 kg

DRUGS (7)
  1. AVANDIA [Suspect]
     Indication: DIABETES MELLITUS
     Dosage: 8MG PER DAY
     Route: 048
     Dates: start: 20000101, end: 20060701
  2. GLUCOPHAGE [Concomitant]
  3. PRAVACHOL [Concomitant]
  4. TOPROL-XL [Concomitant]
  5. FLUOXETINE [Concomitant]
  6. AVALIDE [Concomitant]
  7. TRICOR [Concomitant]

REACTIONS (5)
  - HYPERTENSION [None]
  - CARDIAC DISORDER [None]
  - AMNESIA [None]
  - CAROTID ARTERY STENOSIS [None]
  - SILENT MYOCARDIAL INFARCTION [None]
